FAERS Safety Report 4533227-9 (Version None)
Quarter: 2005Q1

REPORT INFORMATION
  Report Type: 
  Country: None (occurrence: None)
  Receive Date: 20041206
  Receipt Date: 20041025
  Transmission Date: 20050727
  Serious: No
  Sender: FDA-Public Use
  Company Number: USA041082214

PATIENT
  Age: 56 Year
  Sex: Male
  Weight: 109 kg

DRUGS (4)
  1. CYMBALTA [Suspect]
     Dosage: 60 MG AT BEDTIME
  2. ADVICOR [Concomitant]
  3. ENALAPRIL [Concomitant]
  4. XANAX (ALPRAZOLAM DUM) [Concomitant]

REACTIONS (4)
  - EYE PAIN [None]
  - HEADACHE [None]
  - MICTURITION URGENCY [None]
  - POLLAKIURIA [None]
